FAERS Safety Report 11816390 (Version 1)
Quarter: 2015Q4

REPORT INFORMATION
  Report Type: Spontaneous
  Country: FR (occurrence: FR)
  Receive Date: 20151209
  Receipt Date: 20151209
  Transmission Date: 20160305
  Serious: Yes (Other)
  Sender: FDA-Public Use
  Company Number: FR-MYLANLABS-2015M1043373

PATIENT

DRUGS (2)
  1. OLANZAPINE MYLAN FILM-COATED TABLETS [Suspect]
     Active Substance: OLANZAPINE
     Indication: SLEEP DISORDER
     Dosage: 0.5 DF, UNK
  2. OLANZAPINE. [Suspect]
     Active Substance: OLANZAPINE
     Indication: SLEEP DISORDER
     Dosage: 0.5 DF, UNK

REACTIONS (3)
  - Withdrawal syndrome [Unknown]
  - Intentional product misuse [Unknown]
  - Weight increased [Unknown]
